FAERS Safety Report 4972763-8 (Version None)
Quarter: 2006Q2

REPORT INFORMATION
  Report Type: 
  Country: None (occurrence: None)
  Receive Date: 20060414
  Receipt Date: 20060406
  Transmission Date: 20061013
  Serious: Yes (Other)
  Sender: FDA-Public Use
  Company Number: GB-JNJFOC-20060200154

PATIENT
  Sex: Female

DRUGS (2)
  1. DURAGESIC-100 [Suspect]
     Indication: PAIN MANAGEMENT
     Route: 062
  2. FENTANYL [Interacting]
     Indication: ANAESTHESIA
     Dosage: 50-75UG
     Route: 042

REACTIONS (3)
  - ATRIOVENTRICULAR BLOCK [None]
  - DRUG INTERACTION [None]
  - RESPIRATORY RATE DECREASED [None]
